FAERS Safety Report 10697853 (Version 6)
Quarter: 2015Q2

REPORT INFORMATION
  Report Type: Report from Study
  Country: US (occurrence: US)
  Receive Date: 20150108
  Receipt Date: 20150529
  Transmission Date: 20150821
  Serious: Yes (Hospitalization, Other)
  Sender: FDA-Public Use
  Company Number: US-ABBVIE-15K-163-1329836-00

PATIENT
  Age: 48 Year
  Sex: Male
  Weight: 133.93 kg

DRUGS (2)
  1. HUMIRA [Suspect]
     Active Substance: ADALIMUMAB
     Indication: CROHN^S DISEASE
     Route: 065
     Dates: start: 20141021, end: 20141218
  2. HUMIRA [Suspect]
     Active Substance: ADALIMUMAB
     Indication: COLITIS ULCERATIVE

REACTIONS (8)
  - Colonic fistula [Recovering/Resolving]
  - Fistula discharge [Recovering/Resolving]
  - Thrombosis [Unknown]
  - Impaired healing [Unknown]
  - Rectal abscess [Recovering/Resolving]
  - Pulmonary embolism [Recovering/Resolving]
  - Scrotal abscess [Recovering/Resolving]
  - Post procedural infection [Not Recovered/Not Resolved]

NARRATIVE: CASE EVENT DATE: 20141218
